FAERS Safety Report 20963382 (Version 1)
Quarter: 2022Q2

REPORT INFORMATION
  Report Type: Spontaneous
  Country: US (occurrence: US)
  Receive Date: 20220615
  Receipt Date: 20220615
  Transmission Date: 20220721
  Serious: No
  Sender: FDA-Public Use
  Company Number: US-PERRIGO-22US002592

PATIENT
  Age: 57 Year
  Sex: Female
  Weight: 112.47 kg

DRUGS (3)
  1. MICONAZOLE NITRATE [Suspect]
     Active Substance: MICONAZOLE NITRATE
     Indication: Vulvovaginal mycotic infection
     Dosage: 100 MG, QHS
     Route: 067
     Dates: start: 20220205
  2. UNSPECIFIED INGREDIENT [Concomitant]
     Active Substance: UNSPECIFIED INGREDIENT
     Indication: Fluid retention
     Dosage: UNK
     Route: 065
  3. UNSPECIFIED INGREDIENT [Concomitant]
     Active Substance: UNSPECIFIED INGREDIENT
     Indication: Oedema

REACTIONS (1)
  - Therapeutic product effect incomplete [Unknown]

NARRATIVE: CASE EVENT DATE: 20220205
